FAERS Safety Report 13964335 (Version 1)
Quarter: 2017Q3

REPORT INFORMATION
  Report Type: Spontaneous
  Country: US (occurrence: US)
  Receive Date: 20170913
  Receipt Date: 20170913
  Transmission Date: 20171128
  Serious: Yes (Disabling, Other)
  Sender: FDA-Public Use
  Company Number: None

PATIENT
  Sex: Male
  Weight: 91.35 kg

DRUGS (7)
  1. INDEROL [Concomitant]
  2. FLORA PRO ESSENCE URINARY TRACT SUPPLEMENT [Concomitant]
  3. BENICAR [Concomitant]
     Active Substance: OLMESARTAN MEDOXOMIL
  4. VERAMAPIL [Concomitant]
  5. AMBIEN [Concomitant]
     Active Substance: ZOLPIDEM TARTRATE
  6. VALIUM [Concomitant]
     Active Substance: DIAZEPAM
  7. LISINOPRIL, ORAL TABLET [Suspect]
     Active Substance: LISINOPRIL
     Indication: BLOOD PRESSURE INCREASED
     Dosage: ?          QUANTITY:2 TABLET(S);?
     Route: 048
     Dates: start: 20070515, end: 20071016

REACTIONS (9)
  - Weight decreased [None]
  - Thyroid cyst [None]
  - Bladder cancer [None]
  - Hypothyroidism [None]
  - Fatigue [None]
  - Asthenia [None]
  - Insomnia [None]
  - Irritability [None]
  - Thyroid mass [None]

NARRATIVE: CASE EVENT DATE: 20070912
